FAERS Safety Report 18012562 (Version 2)
Quarter: 2020Q3

REPORT INFORMATION
  Report Type: Spontaneous
  Country: ES (occurrence: ES)
  Receive Date: 20200713
  Receipt Date: 20200724
  Transmission Date: 20201103
  Serious: Yes (Congenital Anomaly, Other)
  Sender: FDA-Public Use
  Company Number: ES-CIPLA LTD.-2020ES04629

PATIENT

DRUGS (3)
  1. EMTRICITABINE [Suspect]
     Active Substance: EMTRICITABINE
     Dosage: UNK
     Route: 064
  2. TENOFOVIR [Suspect]
     Active Substance: TENOFOVIR
     Dosage: UNK
     Route: 064
  3. INTELENCE [Suspect]
     Active Substance: ETRAVIRINE
     Dosage: UNK
     Route: 064

REACTIONS (3)
  - Hyperandrogenism [Recovered/Resolved]
  - Foetal exposure during pregnancy [Unknown]
  - Enlarged clitoris [Recovered/Resolved]
